FAERS Safety Report 8764319 (Version 2)
Quarter: 2012Q4

REPORT INFORMATION
  Report Type: 
  Country: US (occurrence: US)
  Receive Date: 20120831
  Receipt Date: 20120919
  Transmission Date: 20130627
  Serious: Yes (Other)
  Sender: FDA-Public Use
  Company Number: US-ALEXION PHARMACEUTICALS INC.-A201201602

PATIENT
  Age: 75 None
  Sex: Male

DRUGS (10)
  1. SOLIRIS 300MG [Suspect]
     Indication: PAROXYSMAL NOCTURNAL HAEMOGLOBINURIA
     Dosage: 600 mg, qw
     Route: 042
     Dates: start: 20110922
  2. SOLIRIS 300MG [Suspect]
     Dosage: 900 mg, q2w
     Route: 042
     Dates: start: 201111
  3. POTASSIUM [Concomitant]
     Dosage: 20 mEq, qd
     Route: 048
  4. LASIX [Concomitant]
     Dosage: 40 mg, during blood transfusions
  5. COMBIVENT [Concomitant]
     Dosage: 2 puffs, bid
  6. VITAMIN D [Concomitant]
     Indication: VITAMIN D DEFICIENCY
     Dosage: 50000 IU, qw
  7. PREDNISONE [Concomitant]
     Dosage: 60 mg, qd
     Route: 048
  8. FOLIC ACID [Concomitant]
     Dosage: 1 mg, qd
     Route: 048
  9. VITAMIN B12 [Concomitant]
     Indication: VITAMIN B12 DEFICIENCY
     Dosage: UNK, qd
     Route: 048
  10. CALCIUM [Concomitant]
     Dosage: 600 mg, bid
     Route: 048

REACTIONS (4)
  - Spinal fracture [Unknown]
  - Haemoglobin decreased [Unknown]
  - Blood urine present [Recovered/Resolved]
  - Back pain [Recovering/Resolving]
